FAERS Safety Report 6157817-5 (Version None)
Quarter: 2009Q2

REPORT INFORMATION
  Report Type: 
  Country: None (occurrence: None)
  Receive Date: 20090414
  Receipt Date: 20090402
  Transmission Date: 20091009
  Serious: Yes (Life-Threatening)
  Sender: FDA-Public Use
  Company Number: 2009-194324-NL

PATIENT
  Age: 64 Year
  Sex: Female

DRUGS (3)
  1. ROCURONIUM BROMIDE [Suspect]
     Indication: ENDOTRACHEAL INTUBATION
     Dosage: 20 MG ONCE INTRAVENOUS BOLUS
     Route: 040
     Dates: start: 20081020, end: 20081020
  2. METFORMIN HCL [Concomitant]
  3. ATENOLOL [Concomitant]

REACTIONS (5)
  - ELECTROCARDIOGRAM ST SEGMENT ELEVATION [None]
  - HYPERSENSITIVITY [None]
  - HYPOTENSION [None]
  - LATEX ALLERGY [None]
  - PEAU D'ORANGE [None]
